FAERS Safety Report 7831528-X (Version None)
Quarter: 2011Q4

REPORT INFORMATION
  Report Type: 
  Country: None (occurrence: None)
  Receive Date: 20111021
  Receipt Date: 20111013
  Transmission Date: 20120403
  Serious: Yes (Hospitalization)
  Sender: FDA-Public Use
  Company Number: PHHY2011GB90502

PATIENT
  Sex: Male

DRUGS (2)
  1. LISINOPRIL [Suspect]
     Route: 048
  2. JANUVIA [Concomitant]
     Indication: DIABETES MELLITUS
     Dosage: 100 MG, UNK
     Route: 048
     Dates: start: 20110101

REACTIONS (3)
  - CHEST PAIN [None]
  - NIPPLE PAIN [None]
  - CONFUSIONAL STATE [None]
